FAERS Safety Report 22041082 (Version 1)
Quarter: 2023Q1

REPORT INFORMATION
  Report Type: Spontaneous
  Country: US (occurrence: None)
  Receive Date: 20230226
  Receipt Date: 20230226
  Transmission Date: 20230417
  Serious: Yes (Disabling)
  Sender: FDA-Public Use
  Company Number: None

PATIENT
  Age: 33 Year
  Sex: Male

DRUGS (2)
  1. METHYLPHENIDATE [Suspect]
     Active Substance: METHYLPHENIDATE
     Indication: Attention deficit hyperactivity disorder
  2. MIRTAZAPINE [Concomitant]
     Active Substance: MIRTAZAPINE

REACTIONS (3)
  - Anxiety [None]
  - Disturbance in attention [None]
  - Product substitution issue [None]

NARRATIVE: CASE EVENT DATE: 20221101
